FAERS Safety Report 9963437 (Version 1)
Quarter: 2014Q1

REPORT INFORMATION
  Report Type: Report from Study
  Country: US (occurrence: US)
  Receive Date: 20140305
  Receipt Date: 20140305
  Transmission Date: 20141002
  Serious: No
  Sender: FDA-Public Use
  Company Number: US-ABBVIE-13P-163-1120066-00

PATIENT
  Age: 37 Year
  Sex: Female

DRUGS (9)
  1. HUMIRA [Suspect]
     Indication: RHEUMATOID ARTHRITIS
     Dates: start: 20130615
  2. CYMBALTA [Concomitant]
     Indication: FIBROMYALGIA
     Dosage: 60 MG DAILY
  3. PLAQUENIL [Concomitant]
     Indication: RHEUMATOID ARTHRITIS
     Dosage: 100 MG DAILY
  4. TOPAMAX [Concomitant]
     Indication: MIGRAINE
     Dosage: 100MG EVERY AM AND 150MG EVERY PM
  5. FIORICET [Concomitant]
     Indication: MIGRAINE
     Dosage: 50/325/40 - 3 TIMES A DAY OR AS REQUIRED
  6. TRAMADOL [Concomitant]
     Indication: ARTHRALGIA
     Dosage: 1-2 = 3 TIMES A DAY OR AS REQUIRED
  7. LEVOXYL [Concomitant]
     Indication: HYPOTHYROIDISM
  8. AMBIEN [Concomitant]
     Dosage: AT BEDTIME
  9. NEURONTIN [Concomitant]
     Indication: FIBROMYALGIA
     Dosage: AT BEDTIME

REACTIONS (2)
  - Furuncle [Not Recovered/Not Resolved]
  - Herpes zoster [Not Recovered/Not Resolved]
